FAERS Safety Report 15068258 (Version 1)
Quarter: 2018Q2

REPORT INFORMATION
  Report Type: Report from Study
  Country: CA (occurrence: CA)
  Receive Date: 20180626
  Receipt Date: 20180626
  Transmission Date: 20180711
  Serious: Yes (Hospitalization)
  Sender: FDA-Public Use
  Company Number: CA-JNJFOC-20180627326

PATIENT
  Age: 36 Year
  Sex: Female
  Weight: 72.6 kg

DRUGS (1)
  1. STELARA [Suspect]
     Active Substance: USTEKINUMAB
     Indication: CROHN^S DISEASE
     Route: 042
     Dates: start: 20180425

REACTIONS (7)
  - Abdominal pain [Not Recovered/Not Resolved]
  - Abscess [Unknown]
  - General physical health deterioration [Unknown]
  - Pain [Recovered/Resolved]
  - Intestinal resection [Unknown]
  - Fistula [Unknown]
  - Ileostomy [Unknown]

NARRATIVE: CASE EVENT DATE: 2018
